FAERS Safety Report 8383185-4 (Version None)
Quarter: 2012Q2

REPORT INFORMATION
  Report Type: 
  Country: None (occurrence: None)
  Receive Date: 20120524
  Receipt Date: 20120514
  Transmission Date: 20120825
  Serious: Yes (Other)
  Sender: FDA-Public Use
  Company Number: IL-VALEANT-2012VX002287

PATIENT

DRUGS (3)
  1. FLUOROURACIL [Suspect]
     Dosage: DOSE UNIT:425
     Route: 040
  2. CALCIUM FOLINATE [Suspect]
     Dosage: DOSE UNIT:20
     Route: 042
  3. SORAFENIB [Suspect]
     Route: 048

REACTIONS (1)
  - FEBRILE NEUTROPENIA [None]
